FAERS Safety Report 7527578-3 (Version None)
Quarter: 2011Q2

REPORT INFORMATION
  Report Type: 
  Country: None (occurrence: None)
  Receive Date: 20110607
  Receipt Date: 20110605
  Transmission Date: 20111010
  Serious: No
  Sender: FDA-Public Use
  Company Number: US-PFIZER INC-2011122200

PATIENT
  Sex: Female
  Weight: 68.9 kg

DRUGS (13)
  1. XANAX [Concomitant]
     Indication: ANXIETY
     Dosage: 0.25 MG, 2X/DAY
     Route: 048
  2. TRAZODONE [Concomitant]
     Indication: SLEEP DISORDER
     Dosage: 200 MG, DAILY
  3. PROMETHAZINE [Concomitant]
     Indication: NAUSEA
     Dosage: 25 MG, 4X/DAY
  4. NEURONTIN [Suspect]
     Indication: NEURALGIA
     Dosage: 300 MG, 2X/DAY
     Route: 048
     Dates: start: 20110425
  5. LIPITOR [Concomitant]
     Indication: BLOOD TRIGLYCERIDES ABNORMAL
  6. GEMFIBROZIL [Concomitant]
     Indication: BLOOD CHOLESTEROL ABNORMAL
     Dosage: 600 MG, 2X/DAY
  7. MELOXICAM [Concomitant]
     Indication: ARTHRITIS
     Dosage: 5 MG, 2X/DAY
  8. PROZAC [Concomitant]
     Indication: PAIN
     Dosage: 0.25 MG, 2X/DAY
     Route: 048
  9. SULFAMETHOXAZOLE AND TRIMETHOPRIM [Concomitant]
     Indication: INFECTED BITES
     Dosage: 800/160MG TWO TIMES A DAY
     Route: 048
  10. BENICAR [Concomitant]
     Indication: MENOPAUSE
     Dosage: 20 MG, DAILY
     Route: 048
  11. LIPITOR [Concomitant]
     Indication: BLOOD CHOLESTEROL ABNORMAL
     Dosage: 80 MG, DAILY
     Route: 048
  12. PREMARIN [Concomitant]
     Indication: BLOOD OESTROGEN ABNORMAL
     Dosage: UNK
     Route: 048
  13. PRILOSEC [Concomitant]
     Indication: GASTRIC DISORDER
     Dosage: 2 MG, DAILY
     Route: 048

REACTIONS (7)
  - SPEECH DISORDER [None]
  - SOMNOLENCE [None]
  - VISION BLURRED [None]
  - EYE MOVEMENT DISORDER [None]
  - DIZZINESS [None]
  - COORDINATION ABNORMAL [None]
  - FATIGUE [None]
